FAERS Safety Report 4632054-1 (Version None)
Quarter: 2005Q2

REPORT INFORMATION
  Report Type: 
  Country: None (occurrence: None)
  Receive Date: 20050331
  Receipt Date: 20040309
  Transmission Date: 20051028
  Serious: Yes (Other)
  Sender: FDA-Public Use
  Company Number: 200411171BCC

PATIENT
  Age: 52 Year
  Sex: Female
  Weight: 113.3993 kg

DRUGS (3)
  1. ALEVE [Suspect]
     Indication: PAIN IN EXTREMITY
     Dosage: 880 MG, BID, ORAL
     Route: 048
     Dates: start: 20040207, end: 20040307
  2. LEXAPRO [Concomitant]
  3. PREMARIN [Concomitant]

REACTIONS (1)
  - BLOOD URINE PRESENT [None]
